FAERS Safety Report 18553057 (Version 1)
Quarter: 2020Q4

REPORT INFORMATION
  Report Type: Spontaneous
  Country: IT (occurrence: IT)
  Receive Date: 20201127
  Receipt Date: 20201127
  Transmission Date: 20210114
  Serious: Yes (Other)
  Sender: FDA-Public Use
  Company Number: IT-ACCORD-164792

PATIENT
  Age: 21 Year
  Sex: Male

DRUGS (1)
  1. SERTRALINE [Suspect]
     Active Substance: SERTRALINE HYDROCHLORIDE
     Indication: MAJOR DEPRESSION

REACTIONS (17)
  - Emotional poverty [Not Recovered/Not Resolved]
  - Sexual dysfunction [Recovering/Resolving]
  - Withdrawal syndrome [Not Recovered/Not Resolved]
  - Anhedonia [Not Recovered/Not Resolved]
  - Attention deficit hyperactivity disorder [Unknown]
  - Abnormal behaviour [Unknown]
  - Premature ejaculation [Not Recovered/Not Resolved]
  - Persistent depressive disorder [Unknown]
  - Obsessive-compulsive disorder [Unknown]
  - Loss of libido [Not Recovered/Not Resolved]
  - Memory impairment [Unknown]
  - Generalised anxiety disorder [Unknown]
  - Erectile dysfunction [Not Recovered/Not Resolved]
  - Hypoaesthesia [Not Recovered/Not Resolved]
  - Emotional disorder [Unknown]
  - Irritability [Unknown]
  - Flat affect [Not Recovered/Not Resolved]
